FAERS Safety Report 10016542 (Version 2)
Quarter: 2014Q1

REPORT INFORMATION
  Report Type: Spontaneous
  Country: AT (occurrence: AT)
  Receive Date: 20140317
  Receipt Date: 20140318
  Transmission Date: 20141002
  Serious: Yes (Other)
  Sender: FDA-Public Use
  Company Number: AT-PFIZER INC-2014074686

PATIENT
  Age: 48 Year
  Sex: Male
  Weight: 102.5 kg

DRUGS (31)
  1. LYRICA [Suspect]
     Dosage: 125 MG, 1X/DAY
     Dates: start: 201307, end: 20130904
  2. LYRICA [Suspect]
     Dosage: 300 MG, 1X/DAY
     Dates: start: 20130905, end: 20130908
  3. LYRICA [Suspect]
     Dosage: 375 MG, 1X/DAY
     Dates: start: 20130909, end: 20130909
  4. LYRICA [Suspect]
     Dosage: 450 MG, 1X/DAY
     Dates: start: 20130910
  5. DOXAZOSIN MESILATE [Suspect]
     Dosage: 4 MG, 1X/DAY
     Dates: start: 20130910, end: 20130929
  6. DOXAZOSIN MESILATE [Suspect]
     Dosage: 8 MG, 1X/DAY
     Dates: start: 20130930
  7. MIRTABENE [Suspect]
     Dosage: 45 MG, 1X/DAY
     Dates: start: 20130904, end: 20130904
  8. MIRTABENE [Suspect]
     Dosage: 90 MG, 1X/DAY
     Dates: start: 20130905, end: 20130924
  9. MIRTABENE [Suspect]
     Dosage: 60 MG, 1X/DAY
     Dates: start: 20130925, end: 20131007
  10. MIRTABENE [Suspect]
     Dosage: 30 MG, 1X/DAY
     Dates: start: 20131008, end: 20131013
  11. CIPRALEX [Suspect]
     Dosage: 5 MG, 1X/DAY
     Dates: start: 20130906, end: 20130909
  12. CIPRALEX [Suspect]
     Dosage: 10 MG, 1X/DAY
     Dates: start: 20130910, end: 20130910
  13. CIPRALEX [Suspect]
     Dosage: 20 MG, 1X/DAY
     Dates: start: 20130911, end: 20130925
  14. CIPRALEX [Suspect]
     Dosage: 30 MG, 1X/DAY
     Dates: start: 20130926
  15. RISPERDAL [Suspect]
     Dosage: 1 MG, 1X/DAY
     Route: 048
     Dates: start: 20130916, end: 20130924
  16. RISPERDAL [Suspect]
     Dosage: 2 MG, 1X/DAY
     Route: 048
     Dates: start: 20130925
  17. SERTRALINE [Concomitant]
     Dosage: 150 MG, 1X/DAY
     Dates: start: 201308, end: 20130908
  18. SERTRALINE [Concomitant]
     Dosage: 100 MG, 1X/DAY
     Dates: start: 20130909, end: 20130910
  19. LAMICTAL [Concomitant]
     Dosage: 50 MG, 1X/DAY
     Dates: start: 201308, end: 20130917
  20. LAMICTAL [Concomitant]
     Dosage: 75 MG, 1X/DAY
     Dates: start: 20130918, end: 20130922
  21. LAMICTAL [Concomitant]
     Dosage: 100 MG, 1X/DAY
     Dates: start: 20130923, end: 20131001
  22. LAMICTAL [Concomitant]
     Dosage: 200 MG, 1X/DAY
     Dates: start: 20131002
  23. RIVOTRIL [Concomitant]
     Dosage: 1.5 MG, 1X/DAY
     Dates: start: 20130905
  24. EXFORGE [Concomitant]
     Dosage: 1 DF, 1X/DAY, 10 TO 160 MG
     Dates: end: 20130909
  25. EXFORGE [Concomitant]
     Dosage: 1 DF, 1X/DAY, 5 TO 160 MG
     Dates: start: 20130910
  26. FOLSAN [Concomitant]
     Dosage: 10 MG, 1X/DAY
     Dates: end: 20130909
  27. FOLSAN [Concomitant]
     Dosage: 5 MG, 1X/DAY
     Dates: start: 20130910
  28. FUNGORAL [Concomitant]
     Dosage: 3, THREE TIMES A WEEK
     Dates: start: 20130918, end: 20131013
  29. FUNGORAL [Suspect]
     Dosage: 1 UNK, 1X/DAY
     Dates: start: 20130918, end: 20131013
  30. EBRANTIL [Concomitant]
     Dosage: 60 MG, 1X/DAY
     Dates: end: 20130909
  31. NEBIVOLOL HYDROCHLORIDE [Concomitant]
     Dosage: 10 MG, 1X/DAY

REACTIONS (5)
  - Weight increased [Not Recovered/Not Resolved]
  - Body mass index increased [Unknown]
  - Blood cholesterol increased [Unknown]
  - Blood prolactin increased [Unknown]
  - Blood triglycerides increased [Unknown]
